FAERS Safety Report 23114894 (Version 1)
Quarter: 2023Q4

REPORT INFORMATION
  Report Type: Spontaneous
  Country: DE (occurrence: DE)
  Receive Date: 20231027
  Receipt Date: 20231027
  Transmission Date: 20240110
  Serious: Yes (Other)
  Sender: FDA-Public Use
  Company Number: DE-ANIPHARMA-2023-DE-000179

PATIENT
  Age: 72 Year
  Sex: Female

DRUGS (2)
  1. CANDESARTAN CILEXETIL [Suspect]
     Active Substance: CANDESARTAN CILEXETIL
     Indication: Product used for unknown indication
     Route: 065
  2. METFORMIN HYDROCHLORIDE [Suspect]
     Active Substance: METFORMIN HYDROCHLORIDE
     Dosage: 3 X 500 MG PER DAY
     Route: 065

REACTIONS (10)
  - Cerebral disorder [Unknown]
  - Urinary incontinence [Unknown]
  - Cardiac disorder [Unknown]
  - Seizure [Unknown]
  - Device placement issue [Unknown]
  - Cardiac pacemaker insertion [Unknown]
  - Chromaturia [Unknown]
  - Diarrhoea [Unknown]
  - Obesity [Unknown]
  - Dizziness [Unknown]
